FAERS Safety Report 6743636-5 (Version None)
Quarter: 2010Q2

REPORT INFORMATION
  Report Type: 
  Country: None (occurrence: None)
  Receive Date: 20100527
  Receipt Date: 20100519
  Transmission Date: 20101027
  Serious: Yes (Other)
  Sender: FDA-Public Use
  Company Number: US-JNJFOC-20100509002

PATIENT
  Sex: Female
  Weight: 100.7 kg

DRUGS (7)
  1. DURAGESIC-100 [Suspect]
     Indication: BACK PAIN
     Route: 062
  2. DURAGESIC-100 [Suspect]
     Route: 062
  3. DURAGESIC-100 [Suspect]
     Route: 062
  4. DURAGESIC-100 [Suspect]
     Route: 062
  5. DURAGESIC-100 [Suspect]
     Route: 062
  6. SOMA [Concomitant]
     Indication: MYALGIA
     Route: 048
  7. ROXICODONE [Concomitant]
     Indication: PAIN
     Route: 048

REACTIONS (8)
  - BACK PAIN [None]
  - FEELING ABNORMAL [None]
  - HYPERHIDROSIS [None]
  - HYPERTENSION [None]
  - LYME DISEASE [None]
  - NERVE INJURY [None]
  - PRODUCT QUALITY ISSUE [None]
  - WRONG TECHNIQUE IN DRUG USAGE PROCESS [None]
